FAERS Safety Report 26102276 (Version 1)
Quarter: 2025Q4

REPORT INFORMATION
  Report Type: Spontaneous
  Country: CN (occurrence: CN)
  Receive Date: 20251128
  Receipt Date: 20251128
  Transmission Date: 20260118
  Serious: Yes (Other)
  Sender: Kenvue
  Company Number: CN-KENVUE-20251108765

PATIENT
  Age: 15 Year
  Weight: 90 kg

DRUGS (1)
  1. MOTRIN INFANTS [Suspect]
     Active Substance: IBUPROFEN
     Indication: Hyperpyrexia
     Dosage: 3 MILLILITER, EVERY 8 HOURS

REACTIONS (2)
  - Product administered to patient of inappropriate age [Unknown]
  - Hepatic function abnormal [Recovered/Resolved]
